FAERS Safety Report 7377871-2 (Version None)
Quarter: 2011Q1

REPORT INFORMATION
  Report Type: 
  Country: None (occurrence: None)
  Receive Date: 20110328
  Receipt Date: 20110321
  Transmission Date: 20110831
  Serious: Yes (Other)
  Sender: FDA-Public Use
  Company Number: ES-ROCHE-767437

PATIENT
  Age: 79 Year
  Sex: Female

DRUGS (6)
  1. TOPOTECAN [Suspect]
     Route: 042
     Dates: start: 20101018, end: 20101022
  2. GRANISETRON HYDROCHLORIDE [Suspect]
     Dosage: AMPOULES 1 MG/1ML, DRUG REPORTED AS GRANISETRON
     Route: 042
     Dates: start: 20101018, end: 20101022
  3. DEXAMETHASONE [Suspect]
     Route: 042
     Dates: start: 20101018, end: 20101022
  4. PARACETAMOL [Concomitant]
     Indication: PAIN
     Dates: start: 20080301
  5. PEGFILGRASTIM [Suspect]
     Indication: PROPHYLAXIS
     Dosage: DOSE REPORTED AS 6 M DAILY
     Route: 058
     Dates: start: 20101022, end: 20101022
  6. OMEPRAZOLE [Concomitant]
     Indication: PROPHYLAXIS
     Dates: start: 20101022

REACTIONS (1)
  - HEPATITIS CHOLESTATIC [None]
